FAERS Safety Report 4774411-9 (Version None)
Quarter: 2005Q3

REPORT INFORMATION
  Report Type: 
  Country: None (occurrence: None)
  Receive Date: 20050919
  Receipt Date: 20050919
  Transmission Date: 20060218
  Serious: Yes (Other)
  Sender: FDA-Public Use
  Company Number: None

PATIENT
  Age: 85 Year
  Sex: Female
  Weight: 79.3795 kg

DRUGS (1)
  1. ZOCOR [Suspect]
     Indication: HYPERLIPIDAEMIA
     Dosage: 20  MG QD PO
     Route: 048
     Dates: start: 20050613, end: 20050912

REACTIONS (2)
  - FEELING ABNORMAL [None]
  - STOMACH DISCOMFORT [None]
